FAERS Safety Report 9722824 (Version 1)
Quarter: 2013Q4

REPORT INFORMATION
  Report Type: Spontaneous
  Country: US (occurrence: None)
  Receive Date: 20131126
  Receipt Date: 20131126
  Transmission Date: 20140711
  Serious: Yes (Death)
  Sender: FDA-Public Use
  Company Number: B0947198A

PATIENT
  Sex: 0

DRUGS (4)
  1. GEMCITABINE [Suspect]
     Indication: HODGKIN^S DISEASE
     Dosage: UNK / UNK / UNKNOWN
  2. MELPHALAN [Suspect]
     Indication: HODGKIN^S DISEASE
     Dosage: UNK / UNK / UNKNOWN
  3. FLUDARABINE PHOSPHATE [Suspect]
     Indication: HODGKIN^S DISEASE
     Dosage: UNK / UNK / UNKNOWN
  4. BRENTUXIMAB VEDOTIN [Suspect]
     Indication: HODGKIN^S DISEASE
     Dosage: UNK/ UNK/ UNKNOWN

REACTIONS (1)
  - Transplant rejection [None]
